FAERS Safety Report 18911353 (Version 1)
Quarter: 2021Q1

REPORT INFORMATION
  Report Type: Report from Study
  Country: CA (occurrence: CA)
  Receive Date: 20210218
  Receipt Date: 20210218
  Transmission Date: 20210420
  Serious: Yes (Life-Threatening, Hospitalization, Other)
  Sender: FDA-Public Use
  Company Number: CA-SA-2021SA053154

PATIENT

DRUGS (8)
  1. CYCLOPHOSPHAMIDE. [Suspect]
     Active Substance: CYCLOPHOSPHAMIDE
     Indication: HAEMATOPOIETIC STEM CELL MOBILISATION
     Dosage: 50 MG/KG, QD, FROM ?5 TO ?2 DAYS
     Route: 042
  2. CYCLOPHOSPHAMIDE. [Suspect]
     Active Substance: CYCLOPHOSPHAMIDE
     Indication: BONE MARROW CONDITIONING REGIMEN
     Dosage: 4.5 G/M2, ?DAY 11
     Route: 042
  3. IMMUNOGLOBULIN I.V [Concomitant]
     Active Substance: HUMAN IMMUNOGLOBULIN G
     Indication: SUPPORTIVE CARE
     Route: 042
  4. FILGRASTIM [Concomitant]
     Active Substance: FILGRASTIM
     Indication: SUPPORTIVE CARE
     Dosage: 10 UG/KG, DAY 10 TO 0
     Route: 058
  5. BUSULFAN. [Suspect]
     Active Substance: BUSULFAN
     Indication: BONE MARROW CONDITIONING REGIMEN
     Dosage: 12.7 MG/KG, DAY ?10 TO ?6
  6. ANTI?THYMOCYTE GLOBULIN (RABBIT) NOS [Suspect]
     Active Substance: LAPINE T-LYMPHOCYTE IMMUNE GLOBULIN
     Indication: BONE MARROW CONDITIONING REGIMEN
     Dosage: 1.25 MG/KG, QD, ?4 TO ?1 DAYS
     Route: 042
  7. FILGRASTIM [Concomitant]
     Active Substance: FILGRASTIM
     Indication: HAEMATOPOIETIC STEM CELL MOBILISATION
  8. URSODEOXYCHOLIC ACID [Concomitant]
     Active Substance: URSODIOL
     Indication: SUPPORTIVE CARE

REACTIONS (3)
  - Venoocclusive liver disease [Recovered/Resolved]
  - Toxicity to various agents [Recovered/Resolved]
  - Off label use [Recovered/Resolved]
